FAERS Safety Report 13898966 (Version 1)
Quarter: 2017Q3

REPORT INFORMATION
  Report Type: Spontaneous
  Country: IN (occurrence: IN)
  Receive Date: 20170824
  Receipt Date: 20170824
  Transmission Date: 20171127
  Serious: Yes (Hospitalization, Other)
  Sender: FDA-Public Use
  Company Number: IN-TORRENT-00000659

PATIENT
  Age: 28 Year
  Sex: Male

DRUGS (4)
  1. METFORMIN [Concomitant]
     Active Substance: METFORMIN HYDROCHLORIDE
  2. OLANZAPINE. [Suspect]
     Active Substance: OLANZAPINE
  3. INSULIN [Concomitant]
     Active Substance: INSULIN NOS
  4. LORAZEPAM. [Concomitant]
     Active Substance: LORAZEPAM

REACTIONS (6)
  - Cardiac failure [Recovering/Resolving]
  - Hypercholesterolaemia [Recovering/Resolving]
  - Diabetes mellitus [Unknown]
  - Congestive cardiomyopathy [Recovering/Resolving]
  - Eosinophilia [Recovering/Resolving]
  - Electrocardiogram QT prolonged [Recovering/Resolving]

NARRATIVE: CASE EVENT DATE: 201205
